FAERS Safety Report 8805232 (Version 2)
Quarter: 2012Q4

REPORT INFORMATION
  Report Type: 
  Country: US (occurrence: US)
  Receive Date: 20120924
  Receipt Date: 20121122
  Transmission Date: 20130627
  Serious: Yes (Death)
  Sender: FDA-Public Use
  Company Number: US-ROCHE-1125851

PATIENT
  Age: 21 Year
  Sex: Female

DRUGS (2)
  1. AVASTIN [Suspect]
     Indication: BRAIN NEOPLASM MALIGNANT
     Route: 042
     Dates: start: 20070412, end: 20070619
  2. AVASTIN [Suspect]
     Indication: ASTROCYTOMA

REACTIONS (1)
  - Neoplasm progression [Fatal]
